FAERS Safety Report 4445772-5 (Version None)
Quarter: 2004Q3

REPORT INFORMATION
  Report Type: 
  Country: None (occurrence: None)
  Receive Date: 20040910
  Receipt Date: 20040819
  Transmission Date: 20050211
  Serious: Yes (Other)
  Sender: FDA-Public Use
  Company Number: 200412695JP

PATIENT
  Age: 54 Year
  Sex: Male
  Weight: 90 kg

DRUGS (2)
  1. KETEK [Suspect]
     Route: 048
     Dates: start: 20040726, end: 20040726
  2. VOLTAREN [Concomitant]
     Indication: ANALGESIC THERAPY
     Route: 048
     Dates: start: 20040726

REACTIONS (11)
  - AMNESIA [None]
  - BACK PAIN [None]
  - BLOOD GLUCOSE INCREASED [None]
  - CHEST PAIN [None]
  - EPILEPSY [None]
  - HEAD INJURY [None]
  - HYPERURICAEMIA [None]
  - LOSS OF CONSCIOUSNESS [None]
  - ROAD TRAFFIC ACCIDENT [None]
  - TONIC CONVULSION [None]
  - TRANSAMINASES INCREASED [None]
